FAERS Safety Report 25497746 (Version 1)
Quarter: 2025Q3

REPORT INFORMATION
  Report Type: Spontaneous
  Country: JP (occurrence: JP)
  Receive Date: 20250701
  Receipt Date: 20250701
  Transmission Date: 20251021
  Serious: Yes (Hospitalization)
  Sender: CSL BEHRING
  Company Number: JP-BEH-2025210788

PATIENT

DRUGS (3)
  1. VELPHORO [Suspect]
     Active Substance: SUCROFERRIC OXYHYDROXIDE
     Indication: Product used for unknown indication
     Dosage: 1500 MG, QD
     Route: 048
     Dates: start: 20250211, end: 20250310
  2. VELPHORO [Suspect]
     Active Substance: SUCROFERRIC OXYHYDROXIDE
     Dosage: 3000 MG, QD
     Route: 048
     Dates: start: 20250311
  3. LANTHANUM CARBONATE [Concomitant]
     Active Substance: LANTHANUM CARBONATE
     Dosage: 1500 MG, QD
     Route: 048
     Dates: start: 20250415

REACTIONS (1)
  - Pneumonia [Unknown]
